FAERS Safety Report 4318637-7 (Version None)
Quarter: 2004Q1

REPORT INFORMATION
  Report Type: 
  Country: None (occurrence: None)
  Receive Date: 20040315
  Receipt Date: 20040301
  Transmission Date: 20041129
  Serious: Yes (Hospitalization)
  Sender: FDA-Public Use
  Company Number: 04P-062-0252020-02

PATIENT
  Age: 64 Year
  Sex: Female
  Weight: 53 kg

DRUGS (14)
  1. HUMIRA [Suspect]
     Indication: RHEUMATOID ARTHRITIS
     Dosage: 40 MG, 1 IN 2 WK, SUBCUTANEOUS
     Route: 058
     Dates: start: 20001229
  2. TRAMADOL HCL [Concomitant]
  3. MAPROTILINE HYDROCHLORIDE [Concomitant]
  4. PREDNISONE [Concomitant]
  5. DIRITHROMYCIN [Concomitant]
  6. OMEPRAZOLE MAGNESIUM [Concomitant]
  7. CAPTOPRIL [Concomitant]
  8. CONLUNETT [Concomitant]
  9. COLECALCIFEROL [Concomitant]
  10. BETAMETHASONE VALERATE [Concomitant]
  11. THEOPHYLLINE [Concomitant]
  12. SORTIS [Concomitant]
  13. ALBUTEROL SULFATE [Concomitant]
  14. SALBUTAMOL SULFATE [Concomitant]

REACTIONS (3)
  - LARYNGEAL CYST [None]
  - TONSILLAR DISORDER [None]
  - TYMPANIC MEMBRANE DISORDER [None]
